FAERS Safety Report 13679010 (Version 16)
Quarter: 2018Q4

REPORT INFORMATION
  Report Type: Spontaneous
  Country: US (occurrence: US)
  Receive Date: 20170622
  Receipt Date: 20181203
  Transmission Date: 20190204
  Serious: Yes (Hospitalization, Other)
  Sender: FDA-Public Use
  Company Number: US-PFIZER INC-2017268428

PATIENT
  Age: 40 Year
  Sex: Female
  Weight: 88 kg

DRUGS (6)
  1. NEURONTIN [Interacting]
     Active Substance: GABAPENTIN
     Indication: SEIZURE
     Dosage: 2 DF, DAILY
     Route: 048
  2. LIPITOR [Suspect]
     Active Substance: ATORVASTATIN CALCIUM
     Indication: BLOOD CHOLESTEROL INCREASED
     Dosage: UNK
     Route: 048
     Dates: start: 2005
  3. TEGRETOL [Interacting]
     Active Substance: CARBAMAZEPINE
     Dosage: 400 MG, UNK
     Route: 048
     Dates: start: 1982
  4. NEURONTIN [Interacting]
     Active Substance: GABAPENTIN
     Dosage: 400 MG, UNK
     Route: 048
     Dates: start: 1982
  5. TEGRETOL [Interacting]
     Active Substance: CARBAMAZEPINE
     Indication: SEIZURE
     Dosage: 5 DF, DAILY
     Route: 048
  6. LIPITOR [Suspect]
     Active Substance: ATORVASTATIN CALCIUM
     Dosage: UNK UNK, 2X/DAY (2 TIMES) (MORNING + NIGHT)
     Route: 048

REACTIONS (19)
  - Gastric cancer [Unknown]
  - Abdominal discomfort [Unknown]
  - Hypersensitivity [Unknown]
  - Drug interaction [Unknown]
  - Cerebrovascular accident [Unknown]
  - Epistaxis [Unknown]
  - Skin cancer [Not Recovered/Not Resolved]
  - Breast cancer [Unknown]
  - Decreased appetite [Unknown]
  - Malaise [Unknown]
  - Food intolerance [Unknown]
  - Blood urine [Unknown]
  - Hepatic cancer [Unknown]
  - Haematemesis [Unknown]
  - Pain [Unknown]
  - Urticaria [Not Recovered/Not Resolved]
  - Chromaturia [Unknown]
  - Lichen sclerosus [Not Recovered/Not Resolved]
  - Dyspepsia [Unknown]

NARRATIVE: CASE EVENT DATE: 2008
